FAERS Safety Report 9663681 (Version 1)
Quarter: 2013Q4

REPORT INFORMATION
  Report Type: Report from Study
  Country: AR (occurrence: AR)
  Receive Date: 20131101
  Receipt Date: 20131101
  Transmission Date: 20140711
  Serious: Yes (Death)
  Sender: FDA-Public Use
  Company Number: PHHY2013AR123613

PATIENT
  Sex: Female

DRUGS (2)
  1. DIOVAN [Suspect]
     Indication: HYPERTENSION
     Dosage: 2 DF, (160 MG) A DAY
     Route: 048
  2. DIOVAN [Suspect]
     Indication: CARDIAC DISORDER

REACTIONS (1)
  - Pulmonary thrombosis [Fatal]
